FAERS Safety Report 8277287-0 (Version None)
Quarter: 2012Q2

REPORT INFORMATION
  Report Type: 
  Country: None (occurrence: None)
  Receive Date: 20120412
  Receipt Date: 20120405
  Transmission Date: 20120825
  Serious: Yes (Other)
  Sender: FDA-Public Use
  Company Number: US-GLAXOSMITHKLINE-A0972448A

PATIENT
  Age: 17 Year
  Sex: Male

DRUGS (1)
  1. LAMICTAL [Suspect]
     Indication: EPILEPSY
     Dosage: 200MG TWICE PER DAY
     Route: 048

REACTIONS (10)
  - ENURESIS [None]
  - NECK PAIN [None]
  - PAIN [None]
  - CONVULSION [None]
  - MENINGITIS ASEPTIC [None]
  - SWOLLEN TONGUE [None]
  - INSOMNIA [None]
  - ANXIETY [None]
  - RASH [None]
  - RENAL IMPAIRMENT [None]
